FAERS Safety Report 21312727 (Version 1)
Quarter: 2022Q3

REPORT INFORMATION
  Report Type: Spontaneous
  Country: CN (occurrence: None)
  Receive Date: 20220909
  Receipt Date: 20220909
  Transmission Date: 20221026
  Serious: Yes (Hospitalization, Other)
  Sender: FDA-Public Use
  Company Number: 2022A308890

PATIENT
  Age: 25227 Day
  Sex: Female
  Weight: 60 kg

DRUGS (2)
  1. OSIMERTINIB MESYLATE [Suspect]
     Active Substance: OSIMERTINIB MESYLATE
     Indication: Lung carcinoma cell type unspecified recurrent
     Route: 048
     Dates: start: 20220125
  2. OSIMERTINIB MESYLATE [Suspect]
     Active Substance: OSIMERTINIB MESYLATE
     Indication: Lung adenocarcinoma
     Route: 048
     Dates: start: 20220125

REACTIONS (2)
  - Ascites [Recovering/Resolving]
  - Hydrothorax [Recovering/Resolving]

NARRATIVE: CASE EVENT DATE: 20220307
